FAERS Safety Report 6935160-1 (Version None)
Quarter: 2010Q3

REPORT INFORMATION
  Report Type: 
  Country: None (occurrence: None)
  Receive Date: 20100822
  Receipt Date: 20100816
  Transmission Date: 20110219
  Serious: Yes (Death)
  Sender: FDA-Public Use
  Company Number: PHHY2010US41791

PATIENT
  Sex: Female

DRUGS (11)
  1. EXJADE [Suspect]
     Indication: HAEMOSIDEROSIS
     Dosage: 1000 MG/ DAILY
     Route: 048
     Dates: start: 20090504
  2. HYDREA [Concomitant]
     Dosage: 500 MG
     Route: 048
     Dates: start: 20090421
  3. FOLIC ACID [Concomitant]
     Dosage: 1 MG
     Route: 048
     Dates: start: 20090421
  4. PROPOXYPHENE HCL [Concomitant]
     Dosage: 100-650 MG TABS,ONE TABLET Q4H
     Route: 048
     Dates: start: 20090421
  5. DARVOCET-N 100 [Concomitant]
     Dosage: 100-650 MG, ONE TABLET Q4H
     Route: 048
     Dates: start: 20090421
  6. ZOLPIDEM TARTRATE [Concomitant]
     Dosage: 10 MG, QHS
     Dates: start: 20100421
  7. AMBIEN [Concomitant]
     Dosage: 10 MG, QHS
     Dates: start: 20090421
  8. CELEBREX [Concomitant]
     Dosage: 200 MG, UNK
     Route: 048
     Dates: start: 20090421, end: 20100215
  9. ALENDRONATE SODIUM [Concomitant]
     Dosage: 70 MG, ONE TABLET WEEKLY
     Route: 048
     Dates: start: 20090421
  10. FOSAMAX [Concomitant]
     Dosage: 70 MG, WEEKLY
     Route: 048
     Dates: start: 20090421
  11. LIDEX [Concomitant]
     Dosage: TWICE DAILY
     Dates: start: 20090424

REACTIONS (1)
  - DEATH [None]
